FAERS Safety Report 4313214-6 (Version None)
Quarter: 2004Q1

REPORT INFORMATION
  Report Type: 
  Country: None (occurrence: None)
  Receive Date: 20040304
  Receipt Date: 20040218
  Transmission Date: 20041129
  Serious: Yes (Hospitalization)
  Sender: FDA-Public Use
  Company Number: 2004SP000034

PATIENT
  Age: 24 Year
  Sex: Female
  Weight: 49.4421 kg

DRUGS (15)
  1. XOPENEX [Suspect]
     Indication: ASTHMA
     Dosage: INHALATION
     Route: 055
     Dates: start: 20040109, end: 20040110
  2. ORTHO TRI-CYCLEN [Concomitant]
  3. RESTORIL [Concomitant]
  4. FLONASE [Concomitant]
  5. FLUNISOLONE [Concomitant]
  6. CLARITIN [Concomitant]
  7. PREDNISONE [Concomitant]
  8. ALBUTEROL [Concomitant]
  9. LEVAQUIN [Concomitant]
  10. ALBUTEROL [Concomitant]
  11. LEVAQUIN [Concomitant]
  12. SEREVENT [Concomitant]
  13. FLOVENT [Concomitant]
  14. SINGULAIR [Concomitant]
  15. ZYRTEC [Concomitant]

REACTIONS (3)
  - ASTHMA [None]
  - BRONCHITIS [None]
  - SPUTUM DISCOLOURED [None]
